FAERS Safety Report 14292618 (Version 1)
Quarter: 2017Q4

REPORT INFORMATION
  Report Type: Spontaneous
  Country: US (occurrence: US)
  Receive Date: 20171215
  Receipt Date: 20171215
  Transmission Date: 20180321
  Serious: No
  Sender: FDA-Public Use
  Company Number: US-LPDUSPRD-20161050

PATIENT
  Age: 37 Year
  Sex: Female
  Weight: 67.59 kg

DRUGS (1)
  1. VENOFER [Suspect]
     Active Substance: IRON SUCROSE
     Dosage: 200MG IV WEEKLY X5 WEEKS
     Route: 042
     Dates: start: 20161015, end: 20161112

REACTIONS (1)
  - Chromaturia [Recovered/Resolved]
